FAERS Safety Report 4316456-9 (Version None)
Quarter: 2004Q1

REPORT INFORMATION
  Report Type: 
  Country: None (occurrence: None)
  Receive Date: 20040311
  Receipt Date: 20040303
  Transmission Date: 20041129
  Serious: Yes (Hospitalization)
  Sender: FDA-Public Use
  Company Number: ENT 2004-0038

PATIENT
  Age: 76 Year
  Sex: Female

DRUGS (3)
  1. COMTAN [Suspect]
     Indication: PARKINSON'S DISEASE
     Dosage: 400 MG QD ORAL
     Route: 048
     Dates: start: 20030816, end: 20031101
  2. SINEMET [Concomitant]
  3. REQUIP [Concomitant]

REACTIONS (2)
  - CATARACT [None]
  - VISION BLURRED [None]
